FAERS Safety Report 10150001 (Version 1)
Quarter: 2014Q2

REPORT INFORMATION
  Report Type: Spontaneous
  Country: DK (occurrence: TR)
  Receive Date: 20140502
  Receipt Date: 20140502
  Transmission Date: 20141212
  Serious: Yes (Hospitalization)
  Sender: FDA-Public Use
  Company Number: TR-FRI-1000066926

PATIENT
  Sex: Male

DRUGS (3)
  1. ESCITALOPRAM [Suspect]
     Indication: DEPRESSION
     Dosage: 10 MG
     Route: 048
     Dates: start: 20140328, end: 20140412
  2. NORVASC [Concomitant]
     Indication: HYPERTENSION
     Route: 048
  3. CO-DIOVAN [Concomitant]
     Indication: HYPERTENSION
     Route: 048

REACTIONS (3)
  - Abdominal pain [Recovered/Resolved]
  - Diarrhoea [Recovered/Resolved]
  - Gastrointestinal oedema [Recovered/Resolved]
